FAERS Safety Report 14968077 (Version 2)
Quarter: 2018Q2

REPORT INFORMATION
  Report Type: Spontaneous
  Country: US (occurrence: US)
  Receive Date: 20180604
  Receipt Date: 20180626
  Transmission Date: 20180711
  Serious: No
  Sender: FDA-Public Use
  Company Number: US-VERTEX PHARMACEUTICALS-2018-003790

PATIENT
  Age: 33 Year
  Sex: Female

DRUGS (8)
  1. MONONESSA [Concomitant]
     Active Substance: ETHINYL ESTRADIOL\NORGESTIMATE
  2. SYMBIC [Concomitant]
  3. SYMDEKO [Suspect]
     Active Substance: IVACAFTOR\TEZACAFTOR
     Indication: CYSTIC FIBROSIS
     Dosage: 100MG TEZACAFTOR/150MG IVACAFTOR AM; 150MG IVACAFTOR PM
     Route: 048
     Dates: start: 20180501
  4. MELOXICAM. [Concomitant]
     Active Substance: MELOXICAM
  5. BUPROPION. [Concomitant]
     Active Substance: BUPROPION
  6. DULOXETINE. [Concomitant]
     Active Substance: DULOXETINE
  7. QUETIAPINE. [Concomitant]
     Active Substance: QUETIAPINE
  8. NOVOLOG [Concomitant]
     Active Substance: INSULIN ASPART

REACTIONS (1)
  - Abdominal pain upper [Unknown]

NARRATIVE: CASE EVENT DATE: 201805
